FAERS Safety Report 6389971-4 (Version None)
Quarter: 2009Q4

REPORT INFORMATION
  Report Type: 
  Country: None (occurrence: None)
  Receive Date: 20091006
  Receipt Date: 20090714
  Transmission Date: 20100525
  Serious: No
  Sender: FDA-Public Use
  Company Number: US-BRISTOL-MYERS SQUIBB COMPANY-14703284

PATIENT
  Age: 55 Year
  Sex: Male

DRUGS (2)
  1. AVAPRO [Suspect]
     Indication: HYPERTENSION
     Dosage: STARTED 9 YRS AGO
     Dates: start: 20000101
  2. AVAPRO [Suspect]
     Indication: ATRIAL FIBRILLATION
     Dosage: STARTED 9 YRS AGO
     Dates: start: 20000101

REACTIONS (2)
  - DYSPNOEA [None]
  - PALPITATIONS [None]
